FAERS Safety Report 11988389 (Version 2)
Quarter: 2016Q1

REPORT INFORMATION
  Report Type: Spontaneous
  Country: US (occurrence: US)
  Receive Date: 20160202
  Receipt Date: 20160223
  Transmission Date: 20160526
  Serious: No
  Sender: FDA-Public Use
  Company Number: US-PFIZER INC-2016055029

PATIENT
  Age: 59 Year
  Sex: Male

DRUGS (13)
  1. GLIPIZIDE. [Interacting]
     Active Substance: GLIPIZIDE
     Dosage: 5 MG, UNK
  2. RAMIPRIL. [Interacting]
     Active Substance: RAMIPRIL
     Dosage: 40 MG, UNK
  3. LYRICA [Suspect]
     Active Substance: PREGABALIN
     Indication: DIABETIC NEUROPATHY
     Dosage: 20 MG, UNK
     Dates: start: 2007
  4. LANTUS [Interacting]
     Active Substance: INSULIN GLARGINE
     Indication: DIABETES MELLITUS
     Dosage: 30 UNITS
     Dates: start: 2005
  5. PLAVIX [Interacting]
     Active Substance: CLOPIDOGREL BISULFATE
     Dosage: 75 MG, UNK
  6. ALPRAZOLAM. [Concomitant]
     Active Substance: ALPRAZOLAM
     Dosage: 2 MG, UNK
     Dates: start: 2007
  7. ASPIRIN. [Interacting]
     Active Substance: ASPIRIN
     Dosage: 325 MG, UNK
  8. LASIX [Interacting]
     Active Substance: FUROSEMIDE
     Indication: CARDIAC DISORDER
     Dosage: 23.5 MG, UNK
  9. METFORMIN [Interacting]
     Active Substance: METFORMIN HYDROCHLORIDE
     Indication: DIABETES MELLITUS
     Dosage: 500 MG, UNK
     Dates: start: 2005
  10. VENTONIL [Concomitant]
     Dosage: UNK
     Dates: start: 2005
  11. PERCOCET [Concomitant]
     Active Substance: ACETAMINOPHEN\OXYCODONE HYDROCHLORIDE
     Dosage: U10/325
     Dates: start: 2007
  12. PANTOPRAZOLE [Interacting]
     Active Substance: PANTOPRAZOLE SODIUM
     Dosage: 40 MG, UNK
  13. CRESTOR [Interacting]
     Active Substance: ROSUVASTATIN CALCIUM
     Dosage: 20 MG, UNK

REACTIONS (7)
  - Gait disturbance [Unknown]
  - Dysuria [Unknown]
  - Joint swelling [Unknown]
  - Drug ineffective [Unknown]
  - Drug interaction [Unknown]
  - Peripheral swelling [Unknown]
  - Myalgia [Unknown]

NARRATIVE: CASE EVENT DATE: 2007
